FAERS Safety Report 23481067 (Version 1)
Quarter: 2024Q1

REPORT INFORMATION
  Report Type: Spontaneous
  Country: US (occurrence: US)
  Receive Date: 20240205
  Receipt Date: 20240205
  Transmission Date: 20240409
  Serious: No
  Sender: FDA-Public Use
  Company Number: US-ABBVIE-5599433

PATIENT
  Sex: Female

DRUGS (1)
  1. SUCRALFATE [Suspect]
     Active Substance: SUCRALFATE
     Indication: Dyspepsia
     Dosage: STRENGTH 1 GRAM
     Route: 048
     Dates: start: 2021

REACTIONS (3)
  - Unevaluable event [Not Recovered/Not Resolved]
  - Dyspepsia [Unknown]
  - Product residue present [Unknown]
